FAERS Safety Report 19772269 (Version 3)
Quarter: 2021Q3

REPORT INFORMATION
  Report Type: Report from Study
  Country: US (occurrence: US)
  Receive Date: 20210901
  Receipt Date: 20210923
  Transmission Date: 20211014
  Serious: Yes (Other)
  Sender: FDA-Public Use
  Company Number: US-PFIZER INC-202101110521

PATIENT
  Age: 68 Year
  Sex: Female

DRUGS (6)
  1. XOSPATA [Interacting]
     Active Substance: GILTERITINIB
     Indication: ACUTE MYELOID LEUKAEMIA
     Dosage: 40 MG, ONCE DAILY
     Route: 048
     Dates: start: 20201231
  2. LEVOFLOXACIN. [Interacting]
     Active Substance: LEVOFLOXACIN
     Dosage: 250 MG, ONCE DAILY
     Route: 048
  3. FLUCONAZOLE. [Suspect]
     Active Substance: FLUCONAZOLE
     Dosage: 100 MG, ONCE A DAY
     Route: 048
  4. TACROLIMUS. [Interacting]
     Active Substance: TACROLIMUS
     Dosage: 3.5 MG, DAILY (1.5 MG IN AM AND 2 MG IN PM)
  5. TRIAMCINOLONE [Interacting]
     Active Substance: TRIAMCINOLONE
     Dosage: UNK, THRICE DAILY
  6. XOSPATA [Interacting]
     Active Substance: GILTERITINIB
     Dosage: 80 MG, ONCE DAILY
     Route: 048

REACTIONS (4)
  - Graft versus host disease [Unknown]
  - Immunosuppressant drug level increased [Unknown]
  - Basedow^s disease [Unknown]
  - Drug interaction [Unknown]

NARRATIVE: CASE EVENT DATE: 20210112
